FAERS Safety Report 7439730-6 (Version None)
Quarter: 2011Q2

REPORT INFORMATION
  Report Type: 
  Country: None (occurrence: None)
  Receive Date: 20110427
  Receipt Date: 20110418
  Transmission Date: 20111010
  Serious: No
  Sender: FDA-Public Use
  Company Number: PHHY2010US87631

PATIENT
  Sex: Female

DRUGS (21)
  1. STOOL SOFTENER [Concomitant]
  2. VERAPAMIL [Concomitant]
  3. PREMARIN [Concomitant]
  4. PRILOSEC [Concomitant]
  5. NASONEX [Concomitant]
     Indication: HYPERSENSITIVITY
  6. AMBIEN CR [Concomitant]
  7. LEVOTHYROXINE SODIUM [Concomitant]
  8. ATIVAN [Concomitant]
     Dosage: AS NEEDED
  9. NITROSTAT [Concomitant]
  10. PREDNISONE [Concomitant]
  11. PERCOCET [Concomitant]
  12. CELEBREX [Concomitant]
  13. CALCIUM [Concomitant]
  14. FORTICAL [Concomitant]
     Indication: OSTEOPOROSIS
  15. RESTASIS [Concomitant]
  16. DIOVAN [Suspect]
     Dosage: 160 MG (IN THE MORNING AND EVENING0
     Dates: start: 20080701
  17. LASIX [Concomitant]
  18. DIAZEPAM [Concomitant]
  19. RANOLAZINE [Concomitant]
  20. EXFORGE HCT [Suspect]
     Dosage: 160/5/12.5 MG, TABLET, ONCE A DAY
     Dates: start: 20101113
  21. NITROGLYCERIN [Suspect]

REACTIONS (9)
  - POLLAKIURIA [None]
  - DRUG INEFFECTIVE [None]
  - JOINT SWELLING [None]
  - FEELING ABNORMAL [None]
  - CATARACT [None]
  - HEART RATE IRREGULAR [None]
  - HEART RATE DECREASED [None]
  - BLOOD PRESSURE INCREASED [None]
  - HEADACHE [None]
